FAERS Safety Report 12255675 (Version 1)
Quarter: 2016Q2

REPORT INFORMATION
  Report Type: Spontaneous
  Country: US (occurrence: None)
  Receive Date: 20160411
  Receipt Date: 20160411
  Transmission Date: 20160815
  Serious: Yes (Disabling, Other)
  Sender: FDA-Public Use
  Company Number: None

PATIENT
  Age: 59 Year
  Sex: Female
  Weight: 51.71 kg

DRUGS (7)
  1. HYDRALAZINE [Suspect]
     Active Substance: HYDRALAZINE HYDROCHLORIDE
  2. VITAMIN [Concomitant]
     Active Substance: VITAMINS
  3. ISONIAZID. [Suspect]
     Active Substance: ISONIAZID
  4. FOSAMAX [Concomitant]
     Active Substance: ALENDRONATE SODIUM
  5. CYMBALTA [Concomitant]
     Active Substance: DULOXETINE HYDROCHLORIDE
  6. OMEPRRZOLE [Concomitant]
  7. VITAMIN [Concomitant]
     Active Substance: VITAMINS

REACTIONS (3)
  - Muscular weakness [None]
  - Gastrointestinal disorder [None]
  - Nausea [None]

NARRATIVE: CASE EVENT DATE: 20160223
